FAERS Safety Report 14748808 (Version 1)
Quarter: 2018Q2

REPORT INFORMATION
  Report Type: Spontaneous
  Country: PK (occurrence: PK)
  Receive Date: 20180411
  Receipt Date: 20180411
  Transmission Date: 20180711
  Serious: Yes (Other)
  Sender: FDA-Public Use
  Company Number: PK-ALLERGAN-1820052US

PATIENT

DRUGS (1)
  1. BOTULINUM TOXIN TYPE A UNK [Suspect]
     Active Substance: BOTULINUM TOXIN TYPE A
     Indication: WRITER^S CRAMP
     Dosage: 100 UNITS, SINGLE
     Route: 030

REACTIONS (2)
  - Lower respiratory tract infection [Unknown]
  - Off label use [Unknown]
